FAERS Safety Report 12555134 (Version 1)
Quarter: 2016Q3

REPORT INFORMATION
  Report Type: Report from Study
  Country: NL (occurrence: NL)
  Receive Date: 20160714
  Receipt Date: 20160714
  Transmission Date: 20161109
  Serious: Yes (Hospitalization)
  Sender: FDA-Public Use
  Company Number: NL-AMGEN-NLDSL2016088474

PATIENT
  Age: 70 Year
  Sex: Female

DRUGS (24)
  1. LETROZOL [Concomitant]
     Active Substance: LETROZOLE
     Dosage: 2.5 MG, QD
     Dates: start: 20150710
  2. MELOXICAM. [Concomitant]
     Active Substance: MELOXICAM
     Dosage: 15 MG, QD
     Dates: start: 20150710
  3. DOXYCYCLINE. [Concomitant]
     Active Substance: DOXYCYCLINE
     Dosage: 100 MG, UNK
     Dates: start: 20160530
  4. MEBEVERINE [Concomitant]
     Active Substance: MEBEVERINE
     Dosage: 200 MG, QD
     Dates: start: 20160519
  5. MACROGOL [Concomitant]
     Active Substance: POLYETHYLENE GLYCOLS
     Dosage: UNK, QD
     Dates: start: 20150710
  6. CALCIUM CARBONATE W/COLECALCIFEROL [Concomitant]
     Active Substance: CALCIUM CARBONATE\CHOLECALCIFEROL
     Dosage: 1.25 G/440 IU, QD
     Dates: start: 20150710
  7. PARACETAMOL [Concomitant]
     Active Substance: ACETAMINOPHEN
     Dosage: 500 MG, QD
     Dates: start: 20150710
  8. AMOXICILLIN. [Concomitant]
     Active Substance: AMOXICILLIN
     Dosage: 500 MG, QD
     Dates: start: 20160429
  9. SALBUTAMOL [Concomitant]
     Active Substance: ALBUTEROL
     Dosage: UNK
     Dates: start: 20160429
  10. ZOPICLONE [Concomitant]
     Active Substance: ZOPICLONE
     Dosage: 7.5 MG, QD
     Dates: start: 20160330, end: 20160528
  11. PANTOPRAZOLE [Concomitant]
     Active Substance: PANTOPRAZOLE SODIUM
     Dosage: 40 MG, QD
     Dates: start: 20160122, end: 20160420
  12. BUDESONIDE W/FORMOTEROL [Concomitant]
     Active Substance: BUDESONIDE\FORMOTEROL
     Dosage: 200/6MCG, QD
     Dates: start: 20160530
  13. HYDROXYZINE [Concomitant]
     Active Substance: HYDROXYZINE\HYDROXYZINE HYDROCHLORIDE
     Dosage: 25 MG, QD
     Dates: start: 20160504, end: 20160518
  14. DULOXETINE. [Concomitant]
     Active Substance: DULOXETINE
     Dosage: 30 MG, QD
     Dates: start: 20150710
  15. POVIDONE [Concomitant]
     Active Substance: POVIDONE
     Dosage: 50 MG/ML, QD
     Dates: start: 20150710
  16. FLUTICASONE PROPIONATE\SALMETEROL XINAFOATE [Concomitant]
     Active Substance: FLUTICASONE PROPIONATE\SALMETEROL XINAFOATE
     Dosage: 50/500MCG
     Dates: start: 20150710
  17. PREGABALIN. [Concomitant]
     Active Substance: PREGABALIN
     Dosage: 75 MG, UNK
     Dates: start: 20160621
  18. VASELINE PURE [Concomitant]
     Active Substance: PETROLATUM
     Dosage: UNK UNK, QD
     Dates: start: 20160330, end: 20160627
  19. OXYBUTYNIN [Concomitant]
     Active Substance: OXYBUTYNIN
     Dosage: 5 MG, QD
     Dates: start: 20150710
  20. ADRENALINE [Concomitant]
     Active Substance: EPINEPHRINE
     Dosage: 1 MG/ML, UNK
     Dates: start: 20160503
  21. XGEVA [Suspect]
     Active Substance: DENOSUMAB
     Indication: PRODUCT USED FOR UNKNOWN INDICATION
     Dosage: 120 MG, Q4WK
     Route: 058
     Dates: start: 20150511
  22. FLURAZEPAM [Concomitant]
     Active Substance: FLURAZEPAM\FLURAZEPAM HYDROCHLORIDE
     Dosage: 30 MG, QD
     Dates: start: 20150710
  23. HYDROCORTISONE. [Concomitant]
     Active Substance: HYDROCORTISONE
     Dosage: 10 MG/G, QD
  24. OXYCODONE [Concomitant]
     Active Substance: OXYCODONE
     Dosage: 20 MG, QD
     Dates: start: 20150710

REACTIONS (4)
  - Pain [Unknown]
  - Abdominal pain [Unknown]
  - Flatulence [Unknown]
  - Bacterial infection [Unknown]

NARRATIVE: CASE EVENT DATE: 20160407
